FAERS Safety Report 5258153-1 (Version None)
Quarter: 2007Q1

REPORT INFORMATION
  Report Type: 
  Country: None (occurrence: None)
  Receive Date: 20070307
  Receipt Date: 20070227
  Transmission Date: 20070707
  Serious: Yes (Congenital Anomaly)
  Sender: FDA-Public Use
  Company Number: MY-PFIZER INC-2007015413

PATIENT

DRUGS (2)
  1. SERTRALINE [Suspect]
     Route: 064
  2. LORAZEPAM [Suspect]
     Route: 064

REACTIONS (4)
  - CLEFT LIP [None]
  - CLEFT PALATE [None]
  - CONGENITAL ANOMALY [None]
  - DRUG EXPOSURE DURING PREGNANCY [None]
